FAERS Safety Report 4286312-3 (Version None)
Quarter: 2004Q1

REPORT INFORMATION
  Report Type: 
  Country: None (occurrence: None)
  Receive Date: 20040116
  Receipt Date: 20030306
  Transmission Date: 20041129
  Serious: No
  Sender: FDA-Public Use
  Company Number: 333429

PATIENT
  Age: 19 Year
  Sex: Female
  Weight: 56.7 kg

DRUGS (2)
  1. VERSED [Suspect]
     Indication: TOOTH EXTRACTION
     Dates: start: 20020615, end: 20020615
  2. DEMEROL [Concomitant]

REACTIONS (3)
  - ADVERSE EVENT [None]
  - RESPIRATORY ARREST [None]
  - SKIN DISCOLOURATION [None]
